FAERS Safety Report 7920741-9 (Version None)
Quarter: 2011Q4

REPORT INFORMATION
  Report Type: 
  Country: None (occurrence: None)
  Receive Date: 20111117
  Receipt Date: 20111109
  Transmission Date: 20120403
  Serious: Yes (Hospitalization)
  Sender: FDA-Public Use
  Company Number: SG-ABBOTT-11P-141-0873339-00

PATIENT
  Sex: Female

DRUGS (4)
  1. PROGESTERONE [Suspect]
     Indication: PRODUCT USED FOR UNKNOWN INDICATION
     Dosage: ONCE
     Route: 030
     Dates: start: 20111008, end: 20111008
  2. TRANEXAMIC ACID [Suspect]
     Indication: MENORRHAGIA
  3. TRANEXAMIC ACID [Concomitant]
     Indication: PRODUCT USED FOR UNKNOWN INDICATION
  4. PROGESTERONE [Suspect]
     Indication: MENORRHAGIA
     Dosage: 200 MG (100 MG, 2 IN 1 D)
     Route: 048
     Dates: start: 20111009, end: 20111010

REACTIONS (5)
  - HEPATIC ENZYME INCREASED [None]
  - JAUNDICE [None]
  - OCULAR ICTERUS [None]
  - PYREXIA [None]
  - ABDOMINAL DISCOMFORT [None]
